FAERS Safety Report 7355034-4 (Version None)
Quarter: 2011Q1

REPORT INFORMATION
  Report Type: 
  Country: None (occurrence: None)
  Receive Date: 20110316
  Receipt Date: 20110306
  Transmission Date: 20110831
  Serious: Yes (Hospitalization)
  Sender: FDA-Public Use
  Company Number: JP-NOVOPROD-324542

PATIENT
  Age: 73 Year
  Sex: Female
  Weight: 55 kg

DRUGS (6)
  1. VICTOZA [Suspect]
     Indication: DIABETES MELLITUS
     Dosage: 0.3 MG, QD
     Route: 058
     Dates: start: 20110128
  2. GLYBURIDE [Concomitant]
     Dosage: 7.5 MG, QD
     Route: 048
     Dates: start: 20110128
  3. RENIVACE [Concomitant]
     Dosage: 5 MG, QD
     Route: 048
  4. LIPOVAS                            /00499301/ [Concomitant]
     Dosage: 5 MG, QD
     Route: 048
  5. VICTOZA [Suspect]
     Dosage: 0.9 MG, QD
     Route: 058
     Dates: start: 20110305
  6. ASPIRIN [Concomitant]
     Dosage: 20 MG, QD
     Route: 048

REACTIONS (2)
  - LOSS OF CONSCIOUSNESS [None]
  - PALLOR [None]
